FAERS Safety Report 15639790 (Version 1)
Quarter: 2018Q4

REPORT INFORMATION
  Report Type: Spontaneous
  Country: US (occurrence: US)
  Receive Date: 20181120
  Receipt Date: 20181120
  Transmission Date: 20190205
  Serious: No
  Sender: FDA-Public Use
  Company Number: US-ENDO PHARMACEUTICALS INC-2018-042097

PATIENT
  Sex: Female

DRUGS (2)
  1. ALPRAZOLAM TABLETS 0.5 MG [Suspect]
     Active Substance: ALPRAZOLAM
     Indication: ANXIETY
     Dosage: 0.5 MG, UNKNOWN
     Route: 048
  2. ALPRAZOLAM TABLETS 0.5 MG [Suspect]
     Active Substance: ALPRAZOLAM
     Indication: PANIC ATTACK

REACTIONS (2)
  - Drug effect delayed [Unknown]
  - Hypoaesthesia oral [Unknown]
